FAERS Safety Report 10177847 (Version 4)
Quarter: 2014Q3

REPORT INFORMATION
  Report Type: Report from Study
  Country: US (occurrence: US)
  Receive Date: 20140516
  Receipt Date: 20140730
  Transmission Date: 20150326
  Serious: Yes (Hospitalization)
  Sender: FDA-Public Use
  Company Number: US-EXELIXIS-CABO-14004182

PATIENT
  Age: 69 Year
  Sex: Male

DRUGS (7)
  1. FLOMAX [Concomitant]
     Active Substance: TAMSULOSIN HYDROCHLORIDE
  2. CABOZANTINIB [Suspect]
     Active Substance: CABOZANTINIB
     Indication: LUNG NEOPLASM MALIGNANT
     Dosage: 140 MG, QD
     Route: 048
     Dates: start: 20140325, end: 20140408
  3. CABOZANTINIB [Suspect]
     Active Substance: CABOZANTINIB
     Dosage: 80 MG, QD
     Route: 048
     Dates: start: 20140620
  4. CABOZANTINIB [Suspect]
     Active Substance: CABOZANTINIB
     Dosage: 120 MG, QD
     Route: 048
     Dates: start: 20140409
  5. PREDNISONE. [Concomitant]
     Active Substance: PREDNISONE
  6. LOVENOX [Concomitant]
     Active Substance: ENOXAPARIN SODIUM
  7. CALCIUM [Concomitant]
     Active Substance: CALCIUM

REACTIONS (15)
  - Thrombosis [Unknown]
  - Haematoma [Unknown]
  - Constipation [Unknown]
  - Fatigue [Recovering/Resolving]
  - Pneumothorax [Unknown]
  - Oedema peripheral [Unknown]
  - Acne [Unknown]
  - Salivary hypersecretion [Unknown]
  - Pruritus [Unknown]
  - Dry skin [Unknown]
  - Nausea [Not Recovered/Not Resolved]
  - Cough [Unknown]
  - Decreased appetite [Not Recovered/Not Resolved]
  - Off label use [Unknown]
  - Vomiting [Not Recovered/Not Resolved]

NARRATIVE: CASE EVENT DATE: 2014
